FAERS Safety Report 17351895 (Version 1)
Quarter: 2020Q1

REPORT INFORMATION
  Report Type: Spontaneous
  Country: US (occurrence: US)
  Receive Date: 20200130
  Receipt Date: 20200130
  Transmission Date: 20200409
  Serious: No
  Sender: FDA-Public Use
  Company Number: US-BAYER-2020-013299

PATIENT
  Age: 17 Year
  Sex: Female

DRUGS (1)
  1. KYLEENA [Suspect]
     Active Substance: LEVONORGESTREL
     Indication: CONTRACEPTION
     Dosage: 17.5 MCG/24HR, CONT
     Route: 015
     Dates: start: 20200121

REACTIONS (4)
  - Expired device used [Not Recovered/Not Resolved]
  - Abdominal pain lower [None]
  - Procedural pain [None]
  - Procedural anxiety [None]

NARRATIVE: CASE EVENT DATE: 20200121
